FAERS Safety Report 8244973-8 (Version None)
Quarter: 2012Q1

REPORT INFORMATION
  Report Type: 
  Country: None (occurrence: None)
  Receive Date: 20120329
  Receipt Date: 20111025
  Transmission Date: 20120608
  Serious: No
  Sender: FDA-Public Use
  Company Number: US-MYLANLABS-2011S1022236

PATIENT
  Age: 56 Year
  Sex: Male

DRUGS (6)
  1. TRILEPTAL [Concomitant]
     Indication: HEADACHE
     Route: 048
  2. DILAUDID [Concomitant]
     Indication: PAIN
     Route: 048
     Dates: start: 20080101
  3. FENTANYL-100 [Suspect]
     Dosage: Q72H
     Route: 062
     Dates: start: 20111023
  4. FENTANYL-100 [Suspect]
     Indication: BACK PAIN
     Dosage: Q72H
     Route: 062
     Dates: end: 20111022
  5. FENTANYL-100 [Suspect]
     Indication: ARTHRITIS
     Dosage: Q72H
     Route: 062
     Dates: end: 20111022
  6. FENTANYL-100 [Suspect]
     Dosage: Q72H
     Route: 062
     Dates: start: 20111023

REACTIONS (4)
  - ROAD TRAFFIC ACCIDENT [None]
  - DRUG WITHDRAWAL SYNDROME [None]
  - ABDOMINAL DISCOMFORT [None]
  - DRUG WITHDRAWAL HEADACHE [None]
